FAERS Safety Report 7463356-1 (Version None)
Quarter: 2011Q2

REPORT INFORMATION
  Report Type: 
  Country: None (occurrence: None)
  Receive Date: 20110506
  Receipt Date: 20090508
  Transmission Date: 20111010
  Serious: Yes (Hospitalization)
  Sender: FDA-Public Use
  Company Number: A0784626A

PATIENT
  Age: 57 Year
  Sex: Male
  Weight: 81.8 kg

DRUGS (1)
  1. AVANDIA [Suspect]
     Indication: DIABETES MELLITUS
     Route: 048
     Dates: end: 20030101

REACTIONS (5)
  - CARDIAC DISORDER [None]
  - CHEST PAIN [None]
  - STENT PLACEMENT [None]
  - CORONARY ARTERY DISEASE [None]
  - MYOCARDIAL ISCHAEMIA [None]
